FAERS Safety Report 9242194 (Version 1)
Quarter: 2013Q2

REPORT INFORMATION
  Report Type: Spontaneous
  Country: GB (occurrence: GB)
  Receive Date: 20130419
  Receipt Date: 20130419
  Transmission Date: 20140414
  Serious: Yes (Other)
  Sender: FDA-Public Use
  Company Number: GB-TEVA-397693ISR

PATIENT
  Age: 66 Year
  Sex: Female

DRUGS (4)
  1. FEXOFENADINE [Suspect]
     Indication: RASH
     Route: 048
     Dates: start: 20130328, end: 20130402
  2. PROPRANOLOL [Interacting]
  3. LISINOPRIL [Concomitant]
  4. FLUCLOXACILLIN SODIUM [Concomitant]

REACTIONS (4)
  - Bradycardia [Unknown]
  - Drug interaction [Unknown]
  - Fatigue [Unknown]
  - Malaise [Unknown]
